FAERS Safety Report 4597129-4 (Version None)
Quarter: 2005Q1

REPORT INFORMATION
  Report Type: 
  Country: None (occurrence: None)
  Receive Date: 20050301
  Receipt Date: 20050216
  Transmission Date: 20050727
  Serious: Yes (Death)
  Sender: FDA-Public Use
  Company Number: F01200500276

PATIENT
  Age: 68 Year
  Sex: Male

DRUGS (2)
  1. (OXALIPLATIN)- SOLUTION - 100 MG/M2 [Suspect]
     Indication: BILE DUCT CANCER
     Dosage: 100 MG/M2 OVER 2 HOURS IV INFUSION ON DAY, Q2W; 2 HOURS - TIME TO ONSET : 2 DAYS
     Route: 042
     Dates: start: 20050211, end: 20050211
  2. (GEMCITABINE) - SOLUTION - 1000 MG/M2 [Suspect]
     Dosage: 1000 MG/M2 OVER 100 MINUTES IV INFUSION ON DAY 1, Q2W; 1 HOUR 40 MINS - TIME TO ONSET : 3 DAYS
     Route: 042
     Dates: start: 20050210, end: 20050210

REACTIONS (3)
  - DIARRHOEA [None]
  - GENERAL PHYSICAL HEALTH DETERIORATION [None]
  - VOMITING [None]
